FAERS Safety Report 24178483 (Version 1)
Quarter: 2024Q3

REPORT INFORMATION
  Report Type: Spontaneous
  Country: US (occurrence: None)
  Receive Date: 20240805
  Receipt Date: 20240805
  Transmission Date: 20241017
  Serious: Yes (Death)
  Sender: Public
  Company Number: None

PATIENT
  Age: 80 Year
  Sex: Female
  Weight: 60.2 kg

DRUGS (1)
  1. TENECTEPLASE [Suspect]
     Active Substance: TENECTEPLASE
     Indication: Ischaemic stroke
     Dosage: FREQUENCY : ONCE;?
     Route: 042

REACTIONS (4)
  - Memory impairment [None]
  - Confusional state [None]
  - Lethargy [None]
  - Cerebral haemorrhage [None]
